FAERS Safety Report 8138019-X (Version None)
Quarter: 2012Q1

REPORT INFORMATION
  Report Type: 
  Country: None (occurrence: None)
  Receive Date: 20120215
  Receipt Date: 20120210
  Transmission Date: 20120608
  Serious: Yes (Death, Hospitalization)
  Sender: FDA-Public Use
  Company Number: BR-PFIZER INC-2012036879

PATIENT
  Age: 79 Year
  Sex: Female
  Weight: 58 kg

DRUGS (7)
  1. ENALAPRIL [Concomitant]
  2. AMLODIPINE [Concomitant]
  3. SUTENT [Suspect]
     Dosage: UNK
     Route: 048
  4. GLIBENCLAMIDE [Concomitant]
  5. DIPIRONA [Concomitant]
  6. SUTENT [Suspect]
     Indication: RENAL CANCER
     Dosage: UNK
     Route: 048
  7. METFORMIN [Concomitant]

REACTIONS (7)
  - RENAL CANCER [None]
  - HYPOTENSION [None]
  - PRURITUS [None]
  - MUCOSAL INFLAMMATION [None]
  - BRADYCARDIA [None]
  - DISEASE PROGRESSION [None]
  - LUNG INFECTION [None]
